FAERS Safety Report 22092474 (Version 1)
Quarter: 2023Q1

REPORT INFORMATION
  Report Type: Spontaneous
  Country: US (occurrence: None)
  Receive Date: 20230313
  Receipt Date: 20230313
  Transmission Date: 20230418
  Serious: Yes (Hospitalization)
  Sender: FDA-Public Use
  Company Number: None

PATIENT
  Sex: Male

DRUGS (1)
  1. BIKTARVY [Suspect]
     Active Substance: BICTEGRAVIR SODIUM\EMTRICITABINE\TENOFOVIR ALAFENAMIDE FUMARATE
     Indication: HIV infection
     Dosage: 50-200-25 MG ORAL??TAKE 1 TABLET BY MOUTH 1 (ONE) TIME EACH DAY AT THE SAME TIME?
     Route: 048
     Dates: start: 20220113

REACTIONS (2)
  - Therapy interrupted [None]
  - Ileostomy [None]
